FAERS Safety Report 8429444-8 (Version None)
Quarter: 2012Q2

REPORT INFORMATION
  Report Type: 
  Country: None (occurrence: None)
  Receive Date: 20120612
  Receipt Date: 20120528
  Transmission Date: 20120825
  Serious: Yes (Hospitalization)
  Sender: FDA-Public Use
  Company Number: JP-ASTRAZENECA-2011SE25006

PATIENT
  Age: 30598 Day
  Sex: Female

DRUGS (16)
  1. PURSENNID [Concomitant]
     Indication: CONSTIPATION
     Route: 048
     Dates: start: 20110317
  2. MEDIPEACE [Concomitant]
     Indication: SLEEP DISORDER
     Route: 048
     Dates: start: 20110316
  3. HALCION [Concomitant]
     Indication: SLEEP DISORDER
     Route: 048
  4. MAGLAX [Concomitant]
     Indication: CONSTIPATION
     Route: 048
     Dates: start: 20110317
  5. ALENDRONATE SODIUM [Concomitant]
     Indication: OSTEOPOROSIS
     Dosage: AS REQUIRED
     Route: 048
  6. FAMOTIDINE [Concomitant]
     Indication: GASTRITIS PROPHYLAXIS
     Route: 048
  7. PLAVIX [Concomitant]
     Indication: ACUTE CORONARY SYNDROME
     Route: 048
     Dates: start: 20110405
  8. PLACEBO [Suspect]
     Indication: ACUTE CORONARY SYNDROME
     Dosage: DAILY
     Route: 048
     Dates: start: 20110315
  9. SUNRYTHM [Concomitant]
     Route: 048
     Dates: start: 20110427, end: 20110429
  10. WARFARIN [Concomitant]
     Route: 048
     Dates: start: 20110426, end: 20110429
  11. AZD6140 [Suspect]
     Indication: ACUTE CORONARY SYNDROME
     Route: 048
     Dates: start: 20110315
  12. FROSEMID [Concomitant]
     Indication: CARDIAC FAILURE
     Route: 048
     Dates: start: 20110317, end: 20110429
  13. ASPIRIN [Suspect]
     Indication: ACUTE CORONARY SYNDROME
     Route: 048
  14. ACTOS [Concomitant]
     Indication: DIABETES MELLITUS
     Route: 048
  15. CRESTOR [Concomitant]
     Indication: HYPERLIPIDAEMIA
     Route: 048
  16. NORVASC [Concomitant]
     Indication: HYPERTENSION
     Route: 048

REACTIONS (1)
  - CARDIAC FAILURE CONGESTIVE [None]
